FAERS Safety Report 6535942-4 (Version None)
Quarter: 2010Q1

REPORT INFORMATION
  Report Type: 
  Country: None (occurrence: None)
  Receive Date: 20100113
  Receipt Date: 20100108
  Transmission Date: 20100710
  Serious: Yes (Other)
  Sender: FDA-Public Use
  Company Number: A0838821A

PATIENT
  Sex: Female
  Weight: 52 kg

DRUGS (4)
  1. SERETIDE [Suspect]
     Indication: ASTHMA
     Dosage: 1PUFF TWICE PER DAY
     Route: 065
     Dates: start: 20091221, end: 20100105
  2. AEROLIN [Suspect]
     Indication: ASTHMA
     Dosage: 2PUFF TWICE PER DAY
     Route: 065
     Dates: start: 20100101
  3. ZYRTEC [Concomitant]
     Dosage: 1TAB PER DAY
     Dates: start: 20100102
  4. AVAMYS [Concomitant]
     Dosage: 2PUFF PER DAY
     Dates: start: 20091101

REACTIONS (7)
  - ASTHMA [None]
  - COUGH [None]
  - DRUG INEFFECTIVE [None]
  - DYSPNOEA [None]
  - EXPIRED DRUG ADMINISTERED [None]
  - PYREXIA [None]
  - SINUSITIS [None]
